FAERS Safety Report 14956626 (Version 1)
Quarter: 2018Q2

REPORT INFORMATION
  Report Type: Spontaneous
  Country: US (occurrence: US)
  Receive Date: 20180531
  Receipt Date: 20180531
  Transmission Date: 20180711
  Serious: No
  Sender: FDA-Public Use
  Company Number: US-NOVEN PHARMACEUTICALS, INC.-US2017001060

PATIENT

DRUGS (2)
  1. DAYTRANA [Suspect]
     Active Substance: METHYLPHENIDATE
     Dosage: 30 MG, UNK
     Route: 062
     Dates: end: 2017
  2. DAYTRANA [Suspect]
     Active Substance: METHYLPHENIDATE
     Indication: ATTENTION DEFICIT/HYPERACTIVITY DISORDER
     Dosage: 20 MG, UNKNOWN
     Route: 062

REACTIONS (9)
  - Product adhesion issue [Unknown]
  - Drug effect decreased [Recovered/Resolved]
  - Application site pruritus [Recovering/Resolving]
  - Application site discolouration [Not Recovered/Not Resolved]
  - Off label use [Unknown]
  - Application site irritation [Recovering/Resolving]
  - Therapy cessation [Recovered/Resolved]
  - Application site urticaria [Recovering/Resolving]
  - Application site rash [Recovering/Resolving]
